FAERS Safety Report 11812697 (Version 2)
Quarter: 2016Q1

REPORT INFORMATION
  Report Type: Report from Study
  Country: JP (occurrence: JP)
  Receive Date: 20151208
  Receipt Date: 20160120
  Transmission Date: 20160525
  Serious: Yes (Life-Threatening, Other)
  Sender: FDA-Public Use
  Company Number: JP-BRISTOL-MYERS SQUIBB COMPANY-BMS-2015-029190

PATIENT
  Age: 78 Year
  Sex: Female

DRUGS (2)
  1. NIVOLUMAB [Suspect]
     Active Substance: NIVOLUMAB
     Indication: MALIGNANT MELANOMA
     Dosage: 100 MG, UNK; 2 MG/KG/DAY
     Route: 041
     Dates: start: 20150401
  2. NIVOLUMAB [Suspect]
     Active Substance: NIVOLUMAB
     Dosage: 100 MG, UNK
     Route: 041
     Dates: start: 20150716

REACTIONS (7)
  - Monoplegia [Unknown]
  - Malignant neoplasm progression [Unknown]
  - Dyskinesia [Unknown]
  - Tri-iodothyronine free decreased [Recovered/Resolved]
  - Female genital tract fistula [Recovered/Resolved with Sequelae]
  - Colostomy [Unknown]
  - Hepatic function abnormal [Recovered/Resolved]

NARRATIVE: CASE EVENT DATE: 20150406
